FAERS Safety Report 4486406-3 (Version None)
Quarter: 2004Q4

REPORT INFORMATION
  Report Type: 
  Country: None (occurrence: None)
  Receive Date: 20041027
  Receipt Date: 20041018
  Transmission Date: 20050328
  Serious: Yes (Hospitalization)
  Sender: FDA-Public Use
  Company Number: FR-ABBOTT-04P-056-0277840-00

PATIENT
  Age: 51 Year
  Sex: Male

DRUGS (10)
  1. ISOPTINE LP [Suspect]
     Indication: DRUG USE FOR UNKNOWN INDICATION
     Route: 048
  2. EUPANTOL [Suspect]
     Indication: DRUG USE FOR UNKNOWN INDICATION
     Dates: end: 20040402
  3. VOLTAREN [Suspect]
     Indication: DRUG USE FOR UNKNOWN INDICATION
     Route: 048
     Dates: end: 20040402
  4. CIPROFLOXACIN [Suspect]
     Indication: BRONCHITIS ACUTE
     Route: 048
     Dates: start: 20040312, end: 20040320
  5. CLAVULIN [Suspect]
     Indication: BRONCHITIS ACUTE
     Route: 048
     Dates: start: 20040312, end: 20040320
  6. NICARDIPINE HCL [Concomitant]
     Indication: DRUG USE FOR UNKNOWN INDICATION
  7. NICARDIPINE HCL [Concomitant]
     Dates: start: 20040504
  8. COLCHICINE [Concomitant]
     Indication: GOUTY ARTHRITIS
     Dates: start: 20040312
  9. COLCHICINE [Concomitant]
     Dates: start: 20040415
  10. LEVOFLOXACIN [Concomitant]
     Indication: DRUG INEFFECTIVE
     Dates: start: 20040329

REACTIONS (4)
  - BRONCHITIS ACUTE [None]
  - HEPATITIS [None]
  - OCULAR ICTERUS [None]
  - RHABDOMYOLYSIS [None]
